FAERS Safety Report 14471698 (Version 2)
Quarter: 2019Q2

REPORT INFORMATION
  Report Type: Spontaneous
  Country: US (occurrence: US)
  Receive Date: 20180131
  Receipt Date: 20190624
  Transmission Date: 20190711
  Serious: Yes (Hospitalization, Other)
  Sender: FDA-Public Use
  Company Number: US-INDIVIOR LIMITED-INDV-108253-2018

PATIENT
  Weight: 3.76 kg

DRUGS (2)
  1. SUBUTEX [Suspect]
     Active Substance: BUPRENORPHINE HYDROCHLORIDE
     Indication: DRUG DEPENDENCE
     Dosage: 8 MG, DAILY
     Route: 064
  2. ANALGESIA [Suspect]
     Active Substance: UNSPECIFIED INGREDIENT
     Indication: LABOUR INDUCTION
     Dosage: UNK
     Route: 064

REACTIONS (3)
  - Drug withdrawal syndrome neonatal [Unknown]
  - Neonatal respiratory failure [Unknown]
  - Foetal exposure during pregnancy [Recovered/Resolved]
